FAERS Safety Report 26106776 (Version 1)
Quarter: 2025Q4

REPORT INFORMATION
  Report Type: Spontaneous
  Country: US (occurrence: US)
  Receive Date: 20251201
  Receipt Date: 20251201
  Transmission Date: 20260118
  Serious: Yes (Death)
  Sender: ROCHE
  Company Number: US-ROCHE-10000443091

PATIENT
  Age: 58 Year
  Sex: Female

DRUGS (3)
  1. ACTEMRA [Suspect]
     Active Substance: TOCILIZUMAB
     Indication: Scleroderma
     Dosage: STRENGTH:162MG/0.9M
     Route: 058
     Dates: start: 202308
  2. ACTEMRA [Suspect]
     Active Substance: TOCILIZUMAB
  3. OFEV [Concomitant]
     Active Substance: NINTEDANIB

REACTIONS (2)
  - Death [Fatal]
  - Off label use [Unknown]

NARRATIVE: CASE EVENT DATE: 20230801
